FAERS Safety Report 22148012 (Version 2)
Quarter: 2023Q2

REPORT INFORMATION
  Report Type: Spontaneous
  Country: JP (occurrence: JP)
  Receive Date: 20230328
  Receipt Date: 20230526
  Transmission Date: 20230722
  Serious: Yes (Life-Threatening, Hospitalization)
  Sender: FDA-Public Use
  Company Number: JP-DSJP-DSJ-2023-111452

PATIENT
  Age: 73 Year
  Sex: Male
  Weight: 66.6 kg

DRUGS (4)
  1. EDOXABAN TOSYLATE [Suspect]
     Active Substance: EDOXABAN TOSYLATE
     Indication: Atrial flutter
     Dosage: 30 MG, QD
     Route: 048
     Dates: start: 20180806, end: 20190328
  2. EDOXABAN TOSYLATE [Suspect]
     Active Substance: EDOXABAN TOSYLATE
     Indication: Atrial fibrillation
  3. AMLODIPINE\TELMISARTAN [Concomitant]
     Active Substance: AMLODIPINE\TELMISARTAN
     Dosage: 1 DF, QD
     Route: 048
     Dates: start: 20190307, end: 20190328
  4. DUTASTERIDE [Concomitant]
     Active Substance: DUTASTERIDE
     Dosage: 0.5 MG, QD
     Route: 048
     Dates: start: 20170303

REACTIONS (6)
  - Abdominal compartment syndrome [Unknown]
  - Shock haemorrhagic [Unknown]
  - Aneurysm ruptured [Recovered/Resolved]
  - Endocarditis [Recovering/Resolving]
  - Intra-abdominal haemorrhage [Recovering/Resolving]
  - Hypertension [Unknown]

NARRATIVE: CASE EVENT DATE: 20190301
